FAERS Safety Report 8296605-0 (Version None)
Quarter: 2012Q2

REPORT INFORMATION
  Report Type: 
  Country: None (occurrence: None)
  Receive Date: 20120418
  Receipt Date: 20120418
  Transmission Date: 20120825
  Serious: No
  Sender: FDA-Public Use
  Company Number: None

PATIENT
  Age: 69 Year
  Sex: Male
  Weight: 68.038 kg

DRUGS (1)
  1. LORATADINE [Suspect]

REACTIONS (1)
  - PRODUCT LABEL ISSUE [None]
